FAERS Safety Report 10062000 (Version 1)
Quarter: 2014Q2

REPORT INFORMATION
  Report Type: Spontaneous
  Country: IT (occurrence: None)
  Receive Date: 20140403
  Receipt Date: 20140403
  Transmission Date: 20141212
  Serious: Yes (Other)
  Sender: FDA-Public Use
  Company Number: AUR-APL-2014-04118

PATIENT
  Age: 48 Year
  Sex: Male
  Weight: 80 kg

DRUGS (1)
  1. RISPERIDONE [Suspect]
     Indication: MENTAL DISORDER
     Dosage: PO
     Route: 048

REACTIONS (1)
  - Urticaria [None]
